FAERS Safety Report 14738436 (Version 2)
Quarter: 2019Q1

REPORT INFORMATION
  Report Type: Spontaneous
  Country: DE (occurrence: DE)
  Receive Date: 20180409
  Receipt Date: 20190122
  Transmission Date: 20190417
  Serious: Yes (Other)
  Sender: FDA-Public Use
  Company Number: DE-B.I. PHARMACEUTICALS,INC./RIDGEFIELD-2017-BI-063724

PATIENT
  Age: 71 Year
  Sex: Male

DRUGS (3)
  1. GILOTRIF [Suspect]
     Active Substance: AFATINIB
     Indication: LUNG ADENOCARCINOMA
     Route: 065
     Dates: start: 201507, end: 201508
  2. OSIMERTINIB. [Concomitant]
     Active Substance: OSIMERTINIB
     Indication: PRODUCT USED FOR UNKNOWN INDICATION
     Route: 065
     Dates: start: 201711
  3. GILOTRIF [Suspect]
     Active Substance: AFATINIB
     Indication: EGFR GENE MUTATION
     Route: 065
     Dates: start: 201508

REACTIONS (10)
  - EGFR gene mutation [Recovered/Resolved]
  - Nail disorder [Unknown]
  - Metastases to liver [Unknown]
  - Malignant pleural effusion [Unknown]
  - Skin disorder [Unknown]
  - Pulmonary fibrosis [Unknown]
  - Acne [Unknown]
  - Pulmonary mass [Recovered/Resolved]
  - Malignant neoplasm progression [Recovered/Resolved]
  - Pulmonary fibrosis [Unknown]

NARRATIVE: CASE EVENT DATE: 201701
